FAERS Safety Report 14054499 (Version 1)
Quarter: 2017Q4

REPORT INFORMATION
  Report Type: Spontaneous
  Country: US (occurrence: US)
  Receive Date: 20171006
  Receipt Date: 20171006
  Transmission Date: 20180321
  Serious: No
  Sender: FDA-Public Use
  Company Number: US-JNJFOC-20170710157

PATIENT
  Sex: Female
  Weight: 61.69 kg

DRUGS (6)
  1. VITAMINE C [Concomitant]
     Active Substance: ASCORBIC ACID
     Indication: ROUTINE HEALTH MAINTENANCE
     Dosage: TAKING FROM MORE THAN 10 YEARS
     Route: 065
  2. PEPCID AC [Suspect]
     Active Substance: FAMOTIDINE
     Route: 048
  3. PEPCID AC [Suspect]
     Active Substance: FAMOTIDINE
     Indication: ANTACID THERAPY
     Dosage: 3-4 PER WEEK AS NEEDED
     Route: 048
     Dates: start: 20170711
  4. ASPIRIN. [Concomitant]
     Active Substance: ASPIRIN
     Indication: PRODUCT USED FOR UNKNOWN INDICATION
     Route: 065
  5. GLUCOSAMINE CHONDROITIN MSM [Concomitant]
     Indication: ROUTINE HEALTH MAINTENANCE
     Dosage: TAKING FROM MORE THAN 10 YEARS
     Route: 065
  6. CURCUMIN [Concomitant]
     Active Substance: CURCUMIN
     Indication: ROUTINE HEALTH MAINTENANCE
     Dosage: TAKING FROM MORE THAN 10 YEARS
     Route: 065

REACTIONS (2)
  - Drug ineffective [Unknown]
  - Extra dose administered [Unknown]

NARRATIVE: CASE EVENT DATE: 20170711
